FAERS Safety Report 4738783-3 (Version None)
Quarter: 2005Q3

REPORT INFORMATION
  Report Type: 
  Country: None (occurrence: None)
  Receive Date: 20050804
  Receipt Date: 20050712
  Transmission Date: 20060218
  Serious: Yes (Other)
  Sender: FDA-Public Use
  Company Number: DE_050215219

PATIENT
  Age: 17 Year
  Sex: Female
  Weight: 68 kg

DRUGS (3)
  1. FLUOXETINE [Suspect]
     Indication: DEPRESSION
     Dosage: 20 MG DAY
     Dates: start: 20041019, end: 20041121
  2. PROMETHAZIN  NEURAXPHARM   (PROMETHAZINE HYDROCHLORIDE) [Concomitant]
  3. RISPERIDONE [Concomitant]

REACTIONS (2)
  - NEUTROPENIA [None]
  - SLEEP DISORDER [None]
